FAERS Safety Report 11871303 (Version 1)
Quarter: 2015Q4

REPORT INFORMATION
  Report Type: Spontaneous
  Country: IN (occurrence: IN)
  Receive Date: 20151228
  Receipt Date: 20151228
  Transmission Date: 20160305
  Serious: Yes (Other)
  Sender: FDA-Public Use
  Company Number: IN-MYLANLABS-2015M1047095

PATIENT

DRUGS (1)
  1. ETOPOSIDE. [Suspect]
     Active Substance: ETOPOSIDE
     Indication: BREAST CANCER
     Route: 065
     Dates: start: 2012

REACTIONS (1)
  - Acute myelomonocytic leukaemia [Unknown]

NARRATIVE: CASE EVENT DATE: 201402
